FAERS Safety Report 9402118 (Version 2)
Quarter: 2013Q3

REPORT INFORMATION
  Report Type: Report from Study
  Country: AU (occurrence: AU)
  Receive Date: 20130716
  Receipt Date: 20130902
  Transmission Date: 20140515
  Serious: Yes (Other)
  Sender: FDA-Public Use
  Company Number: PHHY2013AU074858

PATIENT
  Sex: Female

DRUGS (4)
  1. ACLASTA [Suspect]
     Dosage: UNK UKN, UNK
     Route: 042
  2. ACLASTA [Suspect]
     Dosage: UNK
     Route: 042
     Dates: start: 201008
  3. ACLASTA [Suspect]
     Dosage: UNK
     Route: 042
     Dates: start: 201108
  4. ACLASTA [Suspect]
     Dosage: UNK
     Route: 042
     Dates: start: 201208

REACTIONS (1)
  - Hemiplegia [Not Recovered/Not Resolved]
